FAERS Safety Report 21852411 (Version 3)
Quarter: 2023Q1

REPORT INFORMATION
  Report Type: Report from Study
  Country: US (occurrence: US)
  Receive Date: 20230112
  Receipt Date: 20230324
  Transmission Date: 20230417
  Serious: Yes (Hospitalization, Other)
  Sender: FDA-Public Use
  Company Number: US-ABBVIE-4267007

PATIENT
  Age: 62 Year
  Sex: Female

DRUGS (1)
  1. IMBRUVICA [Suspect]
     Active Substance: IBRUTINIB
     Indication: Chronic lymphocytic leukaemia recurrent
     Route: 048
     Dates: start: 20220118

REACTIONS (5)
  - Pulmonary mass [Unknown]
  - Thoracotomy [Unknown]
  - Nasopharyngitis [Unknown]
  - Lung lobectomy [Unknown]
  - Epistaxis [Unknown]

NARRATIVE: CASE EVENT DATE: 20221201
